FAERS Safety Report 9156859 (Version 1)
Quarter: 2013Q1

REPORT INFORMATION
  Report Type: Spontaneous
  Country: US (occurrence: US)
  Receive Date: 20130312
  Receipt Date: 20130312
  Transmission Date: 20140127
  Serious: Yes (Hospitalization)
  Sender: FDA-Public Use
  Company Number: US-BAYER-2013-028346

PATIENT
  Age: 24 Year
  Sex: Female
  Weight: 139.68 kg

DRUGS (7)
  1. YAZ [Suspect]
  2. YASMIN [Suspect]
  3. NYQUIL [Concomitant]
  4. PEPTO-BISMOL [Concomitant]
  5. IBUPROFEN [Concomitant]
  6. KEPPRA [Concomitant]
  7. TOPAMAX [Concomitant]
     Indication: MIGRAINE PROPHYLAXIS

REACTIONS (1)
  - Superior sagittal sinus thrombosis [Recovering/Resolving]
